FAERS Safety Report 25353319 (Version 1)
Quarter: 2025Q2

REPORT INFORMATION
  Report Type: Spontaneous
  Country: CN (occurrence: CN)
  Receive Date: 20250523
  Receipt Date: 20250523
  Transmission Date: 20250716
  Serious: Yes (Hospitalization, Other)
  Sender: BEIGENE
  Company Number: CN-BEIGENE-BGN-2025-007879

PATIENT
  Age: 59 Year
  Weight: 46 kg

DRUGS (16)
  1. TISLELIZUMAB [Suspect]
     Active Substance: TISLELIZUMAB
     Indication: Lung neoplasm malignant
  2. TISLELIZUMAB [Suspect]
     Active Substance: TISLELIZUMAB
  3. TISLELIZUMAB [Suspect]
     Active Substance: TISLELIZUMAB
     Route: 041
  4. TISLELIZUMAB [Suspect]
     Active Substance: TISLELIZUMAB
     Route: 041
  5. TISLELIZUMAB [Suspect]
     Active Substance: TISLELIZUMAB
  6. TISLELIZUMAB [Suspect]
     Active Substance: TISLELIZUMAB
  7. TISLELIZUMAB [Suspect]
     Active Substance: TISLELIZUMAB
     Route: 041
  8. TISLELIZUMAB [Suspect]
     Active Substance: TISLELIZUMAB
     Route: 041
  9. SODIUM CHLORIDE [Concomitant]
     Active Substance: SODIUM CHLORIDE
     Indication: Vehicle solution use
  10. SODIUM CHLORIDE [Concomitant]
     Active Substance: SODIUM CHLORIDE
  11. SODIUM CHLORIDE [Concomitant]
     Active Substance: SODIUM CHLORIDE
     Route: 041
  12. SODIUM CHLORIDE [Concomitant]
     Active Substance: SODIUM CHLORIDE
     Route: 041
  13. SODIUM CHLORIDE [Concomitant]
     Active Substance: SODIUM CHLORIDE
  14. SODIUM CHLORIDE [Concomitant]
     Active Substance: SODIUM CHLORIDE
  15. SODIUM CHLORIDE [Concomitant]
     Active Substance: SODIUM CHLORIDE
     Route: 041
  16. SODIUM CHLORIDE [Concomitant]
     Active Substance: SODIUM CHLORIDE
     Route: 041

REACTIONS (2)
  - Interstitial lung disease [Recovering/Resolving]
  - Pneumonitis [Recovering/Resolving]
